FAERS Safety Report 9499474 (Version 1)
Quarter: 2013Q3

REPORT INFORMATION
  Report Type: Spontaneous
  Country: GB (occurrence: None)
  Receive Date: 20130903
  Receipt Date: 20130903
  Transmission Date: 20140515
  Serious: Yes (Disabling, Other)
  Sender: FDA-Public Use
  Company Number: 2013GMK006614

PATIENT
  Age: 52 Year
  Sex: Female

DRUGS (2)
  1. TOPIRAMATE (TOPIRAMATE) UNKNOWN [Suspect]
     Indication: MIGRAINE PROPHYLAXIS
     Dosage: 25 MG, OD, ORAL
     Route: 048
     Dates: start: 20130719
  2. PROPRANOLOL (PROPRANOLOL) [Concomitant]

REACTIONS (9)
  - Anxiety [None]
  - Depression [None]
  - Thirst [None]
  - Malaise [None]
  - Palpitations [None]
  - Myalgia [None]
  - Paraesthesia [None]
  - Personality change [None]
  - Eye pain [None]
